FAERS Safety Report 13898182 (Version 1)
Quarter: 2017Q3

REPORT INFORMATION
  Report Type: Spontaneous
  Country: IE (occurrence: IE)
  Receive Date: 20170824
  Receipt Date: 20170824
  Transmission Date: 20171127
  Serious: Yes (Other)
  Sender: FDA-Public Use
  Company Number: IE-ASTRAZENECA-2017SE85763

PATIENT
  Age: 82 Year
  Sex: Male

DRUGS (5)
  1. NEBILET [Concomitant]
     Active Substance: NEBIVOLOL
     Route: 048
  2. PULMICORT RESPULES [Suspect]
     Active Substance: BUDESONIDE
     Indication: LOWER RESPIRATORY TRACT INFECTION
     Dosage: 0.5 MG/2 ML 3 TIMES A DAY (0.5 MG,3 IN 1 D)
     Route: 055
  3. NITROLINGUAL PUMP SPRAY [Concomitant]
     Route: 060
  4. RAMIPRIL. [Concomitant]
     Active Substance: RAMIPRIL
     Route: 048
  5. NUSEALS ASPIRIN [Concomitant]
     Indication: VASCULAR GRAFT
     Dosage: MON-FRI ONLY (75 MG,4 IN 1 WK)
     Route: 048

REACTIONS (4)
  - Dysphonia [Recovered/Resolved]
  - Dry throat [Recovered/Resolved]
  - Cough [Recovered/Resolved]
  - Pollakiuria [Not Recovered/Not Resolved]
